FAERS Safety Report 17875207 (Version 2)
Quarter: 2020Q2

REPORT INFORMATION
  Report Type: Report from Study
  Country: AT (occurrence: AT)
  Receive Date: 20200609
  Receipt Date: 20200612
  Transmission Date: 20200714
  Serious: Yes (Death, Hospitalization)
  Sender: FDA-Public Use
  Company Number: AT-ROCHE-2608752

PATIENT
  Age: 80 Year
  Sex: Male
  Weight: 88 kg

DRUGS (16)
  1. PEMETREXED. [Suspect]
     Active Substance: PEMETREXED
     Indication: NON-SMALL CELL LUNG CANCER
     Dosage: ON 01/AUG/2019, MOST RECENT DOSE (1058.64 MG) OF PEMETREXED ADMINISTERED PRIOR TO AE/SAE ONSET.
     Route: 042
     Dates: start: 20190529
  2. RENISTAD [Concomitant]
     Indication: HYPERTENSION
     Route: 048
     Dates: start: 2011
  3. FOSTER [Concomitant]
     Active Substance: BECLOMETHASONE\FORMOTEROL
     Indication: DYSPNOEA
     Dosage: DOSE: 2 PUFF
     Route: 013
     Dates: start: 20190906
  4. BRIMICA [Concomitant]
     Active Substance: ACLIDINIUM BROMIDE\FORMOTEROL FUMARATE
     Indication: DYSPNOEA
     Dosage: DOSE: 1 PUFF
     Route: 055
     Dates: start: 20191223
  5. FOLSAN [Concomitant]
     Active Substance: FOLIC ACID
     Indication: PROPHYLACTIC CHEMOTHERAPY
     Route: 048
     Dates: start: 20190521
  6. OXYGEN. [Concomitant]
     Active Substance: OXYGEN
     Indication: DYSPNOEA
     Dosage: DOSE: 2 OTHER
     Route: 055
     Dates: start: 20190906
  7. CARBOPLATIN. [Suspect]
     Active Substance: CARBOPLATIN
     Indication: NON-SMALL CELL LUNG CANCER
     Dosage: ON 01/AUG/2019, MOST RECENT DOSE (760.6 MG) OF CARBOPLATIN ADMINISTERED PRIOR TO AE/SAE ONSET.?DOSE:
     Route: 042
     Dates: start: 20190529
  8. CONCOR [Concomitant]
     Active Substance: BISOPROLOL FUMARATE
     Indication: ATRIAL FIBRILLATION
     Route: 048
     Dates: start: 20190910
  9. APREDNISLON [Concomitant]
     Active Substance: PREDNISOLONE
     Indication: FATIGUE
     Route: 048
     Dates: start: 20200430, end: 20200504
  10. ATEZOLIZUMAB. [Suspect]
     Active Substance: ATEZOLIZUMAB
     Indication: NON-SMALL CELL LUNG CANCER
     Dosage: ON 01/AUG/2019, MOST RECENT DOSE (1186.02 MG) OF ATEZOLIZUMAB ADMINISTERED PRIOR TO AE/SAE ONSET.
     Route: 042
     Dates: start: 20190529
  11. APREDNISLON [Concomitant]
     Active Substance: PREDNISOLONE
     Route: 048
     Dates: start: 20200517, end: 20200521
  12. ATEZOLIZUMAB. [Suspect]
     Active Substance: ATEZOLIZUMAB
     Indication: NON-SMALL CELL LUNG CANCER
     Dosage: ON 09/APR/2019, MOST RECENT DOSE (1200 MG) OF ATEZOLIZUMAB ADMINISTERED PRIOR TO AE/SAE ONSET.?DOSE:
     Route: 042
     Dates: start: 20191114
  13. BERODUAL [Concomitant]
     Active Substance: FENOTEROL HYDROBROMIDE\IPRATROPIUM BROMIDE
     Indication: DYSPNOEA
     Dosage: DOSE: 2 PUFF
     Route: 055
     Dates: start: 20190923
  14. APREDNISLON [Concomitant]
     Active Substance: PREDNISOLONE
     Route: 048
     Dates: start: 20200511, end: 20200516
  15. LIXIANA [Concomitant]
     Active Substance: EDOXABAN TOSYLATE
     Indication: ATRIAL FIBRILLATION
     Route: 048
     Dates: start: 20191010
  16. APREDNISLON [Concomitant]
     Active Substance: PREDNISOLONE
     Route: 048
     Dates: start: 20200505, end: 20200510

REACTIONS (1)
  - Pulmonary oedema [Fatal]

NARRATIVE: CASE EVENT DATE: 20200524
